FAERS Safety Report 25643282 (Version 3)
Quarter: 2025Q3

REPORT INFORMATION
  Report Type: Report from Study
  Country: US (occurrence: US)
  Receive Date: 20250805
  Receipt Date: 20250917
  Transmission Date: 20251021
  Serious: Yes (Other)
  Sender: ABBVIE
  Company Number: US-ABBVIE-6318671

PATIENT
  Age: 87 Year
  Sex: Female

DRUGS (3)
  1. HUMIRA [Suspect]
     Active Substance: ADALIMUMAB
     Indication: Rheumatoid arthritis
     Route: 058
     Dates: start: 20240214
  2. HUMIRA [Suspect]
     Active Substance: ADALIMUMAB
     Route: 058
     Dates: start: 20250430
  3. HUMIRA [Suspect]
     Active Substance: ADALIMUMAB
     Route: 058
     Dates: start: 20250605

REACTIONS (6)
  - Eye operation [Unknown]
  - Eye operation [Recovered/Resolved]
  - Glaucoma drainage device placement [Unknown]
  - Vision blurred [Unknown]
  - Glaucoma [Unknown]
  - Retinal oedema [Unknown]

NARRATIVE: CASE EVENT DATE: 20240101
